FAERS Safety Report 15296536 (Version 1)
Quarter: 2018Q3

REPORT INFORMATION
  Report Type: Spontaneous
  Country: FR (occurrence: FR)
  Receive Date: 20180820
  Receipt Date: 20180820
  Transmission Date: 20181010
  Serious: Yes (Life-Threatening)
  Sender: FDA-Public Use
  Company Number: FR-PFIZER INC-2018328674

PATIENT
  Age: 86 Year
  Sex: Male
  Weight: 70 kg

DRUGS (15)
  1. TRIVASTAL /00397201/ [Suspect]
     Active Substance: PIRIBEDIL
     Dosage: 1 DF, UNK
     Route: 048
  2. BACLOFEN. [Suspect]
     Active Substance: BACLOFEN
     Dosage: 2 DF, UNK
     Route: 065
  3. TEMESTA /00273201/ [Suspect]
     Active Substance: LORAZEPAM
     Dosage: 1 DF, UNK
     Route: 048
  4. FUROSEMIDE. [Concomitant]
     Active Substance: FUROSEMIDE
     Dosage: 20 MG, UNK
     Route: 048
  5. CIFLOX /00697202/ [Suspect]
     Active Substance: CIPROFLOXACIN HYDROCHLORIDE
     Indication: URINARY TRACT INFECTION
     Dosage: UNK
     Route: 065
     Dates: start: 20180209
  6. TAHOR [Concomitant]
     Active Substance: ATORVASTATIN CALCIUM
     Dosage: 1 DF, UNK
     Route: 048
  7. DAFLON /01026201/ [Concomitant]
     Active Substance: DIOSMIN\HESPERIDIN
     Dosage: 2 DF, UNK
     Route: 048
  8. SEROPLEX [Suspect]
     Active Substance: ESCITALOPRAM OXALATE
     Dosage: 1 DF, UNK
     Route: 048
  9. CORDARONE [Concomitant]
     Active Substance: AMIODARONE HYDROCHLORIDE
     Dosage: 0.5 DF, UNK (5 DAYS A WEEK)
     Route: 048
  10. TAKADOL [Suspect]
     Active Substance: TRAMADOL
     Dosage: 1.5 DF, UNK
     Route: 048
  11. LYRICA [Suspect]
     Active Substance: PREGABALIN
     Indication: NEURALGIA
     Dosage: 1 DF, UNK
     Route: 048
  12. PREVISCAN /00789001/ [Concomitant]
     Active Substance: FLUINDIONE
     Dosage: UNK (ACCORDING TO INR)
     Route: 048
  13. LEVOTHYROX [Concomitant]
     Active Substance: LEVOTHYROXINE
     Dosage: 1 DF, UNK
     Route: 048
  14. PARALYOC [Concomitant]
     Active Substance: ACETAMINOPHEN
     Dosage: UNK
     Route: 048
  15. TERCIAN /00759302/ [Suspect]
     Active Substance: CYAMEMAZINE
     Dosage: UNK
     Route: 048

REACTIONS (1)
  - Confusional state [Not Recovered/Not Resolved]

NARRATIVE: CASE EVENT DATE: 20180209
